FAERS Safety Report 9563184 (Version 1)
Quarter: 2013Q3

REPORT INFORMATION
  Report Type: Spontaneous
  Country: US (occurrence: US)
  Receive Date: 20130927
  Receipt Date: 20130927
  Transmission Date: 20140515
  Serious: No
  Sender: FDA-Public Use
  Company Number: US-BRISTOL-MYERS SQUIBB COMPANY-18870923

PATIENT
  Sex: Male

DRUGS (3)
  1. METFORMIN HCL [Suspect]
     Route: 048
  2. ONGLYZA TABS [Suspect]
     Route: 048
  3. GLIMEPIRIDE [Suspect]
     Route: 048

REACTIONS (1)
  - Hypertension [Unknown]
